FAERS Safety Report 6286741-2 (Version None)
Quarter: 2009Q3

REPORT INFORMATION
  Report Type: 
  Country: None (occurrence: None)
  Receive Date: 20090716
  Receipt Date: 20090609
  Transmission Date: 20100115
  Serious: Yes (Other)
  Sender: FDA-Public Use
  Company Number: 188739

PATIENT
  Age: 54 Year
  Sex: Female
  Weight: 77.1115 kg

DRUGS (10)
  1. AVONEX [Suspect]
     Indication: MULTIPLE SCLEROSIS
     Dosage: 30 UG;QW;IM
     Route: 030
     Dates: start: 19990601, end: 20031101
  2. ALLEGRA [Concomitant]
  3. PROZAC [Concomitant]
  4. LEVOXYL [Concomitant]
  5. LIPITOR [Concomitant]
  6. ADVAIR HFA [Concomitant]
  7. NEXIUM [Concomitant]
  8. BACLOFEN [Concomitant]
  9. PROZAC [Concomitant]
  10. PREV MEDS [Concomitant]

REACTIONS (4)
  - CONGESTIVE CARDIOMYOPATHY [None]
  - DYSPHORIA [None]
  - INFLUENZA LIKE ILLNESS [None]
  - VIRAL INFECTION [None]
